FAERS Safety Report 25952364 (Version 1)
Quarter: 2025Q4

REPORT INFORMATION
  Report Type: Spontaneous
  Country: US (occurrence: US)
  Receive Date: 20251023
  Receipt Date: 20251023
  Transmission Date: 20260117
  Serious: Yes (Life-Threatening, Hospitalization, Other)
  Sender: CIPLA
  Company Number: US-CIPLA LTD.-2025US13094

PATIENT

DRUGS (35)
  1. CARBOPLATIN [Suspect]
     Active Substance: CARBOPLATIN
     Indication: Hepatic cancer recurrent
     Dosage: POST-LIVER TRANSPLANT
     Route: 065
     Dates: start: 2023, end: 2023
  2. CARBOPLATIN [Suspect]
     Active Substance: CARBOPLATIN
     Indication: Hepatoblastoma
  3. CARBOPLATIN [Suspect]
     Active Substance: CARBOPLATIN
     Indication: Hepatocellular carcinoma
  4. IRINOTECAN [Suspect]
     Active Substance: IRINOTECAN
     Indication: Hepatic cancer recurrent
     Dosage: CYCLE 1
     Route: 065
     Dates: start: 2022, end: 2023
  5. IRINOTECAN [Suspect]
     Active Substance: IRINOTECAN
     Indication: Hepatoblastoma
     Dosage: CYCLE 1
     Route: 065
     Dates: start: 2023, end: 2023
  6. IRINOTECAN [Suspect]
     Active Substance: IRINOTECAN
     Indication: Hepatocellular carcinoma
  7. GEMCITABINE [Suspect]
     Active Substance: GEMCITABINE
     Indication: Hepatic cancer recurrent
     Dosage: UNK
     Route: 065
     Dates: start: 2024, end: 2025
  8. GEMCITABINE [Suspect]
     Active Substance: GEMCITABINE
     Indication: Hepatoblastoma
  9. GEMCITABINE [Suspect]
     Active Substance: GEMCITABINE
     Indication: Hepatocellular carcinoma
  10. OXALIPLATIN [Suspect]
     Active Substance: OXALIPLATIN
     Indication: Hepatic cancer recurrent
     Dosage: UNK
     Route: 065
     Dates: start: 2024, end: 2025
  11. OXALIPLATIN [Suspect]
     Active Substance: OXALIPLATIN
     Indication: Hepatoblastoma
  12. OXALIPLATIN [Suspect]
     Active Substance: OXALIPLATIN
     Indication: Hepatocellular carcinoma
  13. CISPLATIN [Suspect]
     Active Substance: CISPLATIN
     Indication: Hepatic cancer recurrent
     Dosage: C5VD CYCLE 1,2,3,4
     Route: 065
     Dates: start: 2022, end: 2022
  14. CISPLATIN [Suspect]
     Active Substance: CISPLATIN
     Indication: Hepatoblastoma
     Dosage: C5VD CYCLE 5 AND 6 (POST-LIVER TRANSPLANT)
     Route: 065
     Dates: start: 2023, end: 2023
  15. CISPLATIN [Suspect]
     Active Substance: CISPLATIN
     Indication: Hepatocellular carcinoma
     Dosage: ELEVEN MONTHS POST-TRANSPLANT
     Route: 065
     Dates: start: 2024, end: 2024
  16. DOXORUBICIN [Suspect]
     Active Substance: DOXORUBICIN
     Indication: Hepatic cancer recurrent
     Dosage: C5VD CYCLE 1,2,3,4
     Route: 065
     Dates: start: 2022, end: 2022
  17. DOXORUBICIN [Suspect]
     Active Substance: DOXORUBICIN
     Indication: Hepatoblastoma
     Dosage: C5VD CYCLE 5 AND 6 (POST-LIVER TRANSPLANT)
     Route: 065
     Dates: start: 2023, end: 2023
  18. DOXORUBICIN [Suspect]
     Active Substance: DOXORUBICIN
     Indication: Hepatocellular carcinoma
  19. FLUOROURACIL [Suspect]
     Active Substance: FLUOROURACIL
     Indication: Hepatic cancer recurrent
     Dosage: C5VD CYCLE 1,2,3,4
     Route: 065
     Dates: start: 2022, end: 2022
  20. FLUOROURACIL [Suspect]
     Active Substance: FLUOROURACIL
     Indication: Hepatoblastoma
     Dosage: C5VD CYCLE 5 AND 6 (POST-LIVER TRANSPLANT)
     Route: 065
     Dates: start: 2023, end: 2023
  21. FLUOROURACIL [Suspect]
     Active Substance: FLUOROURACIL
     Indication: Hepatocellular carcinoma
  22. VINCRISTINE [Suspect]
     Active Substance: VINCRISTINE
     Indication: Hepatic cancer recurrent
     Dosage: C5VD CYCLE 1,2,3,4
     Route: 065
     Dates: start: 2022, end: 2022
  23. VINCRISTINE [Suspect]
     Active Substance: VINCRISTINE
     Indication: Hepatoblastoma
     Dosage: C5VD CYCLE 5 AND 6 (POST-LIVER TRANSPLANT)
     Route: 065
     Dates: start: 2023, end: 2023
  24. VINCRISTINE [Suspect]
     Active Substance: VINCRISTINE
     Indication: Hepatocellular carcinoma
     Dosage: CYCLE 1
     Route: 065
     Dates: start: 2022, end: 2023
  25. VINCRISTINE [Suspect]
     Active Substance: VINCRISTINE
     Dosage: CYCLE 2
     Route: 065
     Dates: start: 2023, end: 2023
  26. ETOPOSIDE [Suspect]
     Active Substance: ETOPOSIDE
     Indication: Hepatic cancer recurrent
     Dosage: POST-LIVER TRANSPLANT
     Route: 065
     Dates: start: 2023, end: 2023
  27. ETOPOSIDE [Suspect]
     Active Substance: ETOPOSIDE
     Indication: Hepatoblastoma
  28. ETOPOSIDE [Suspect]
     Active Substance: ETOPOSIDE
     Indication: Hepatocellular carcinoma
  29. VORINOSTAT [Suspect]
     Active Substance: VORINOSTAT
     Indication: Hepatic cancer recurrent
     Dosage: ELEVEN MONTHS POST-TRANSPLANT
     Route: 065
     Dates: start: 2024, end: 2024
  30. VORINOSTAT [Suspect]
     Active Substance: VORINOSTAT
     Indication: Hepatoblastoma
  31. VORINOSTAT [Suspect]
     Active Substance: VORINOSTAT
     Indication: Hepatocellular carcinoma
  32. YTTRIUM CHLORIDE Y-90 [Suspect]
     Active Substance: YTTRIUM CHLORIDE Y-90
     Indication: Hepatic cancer recurrent
     Dosage: UNK
     Route: 065
  33. YTTRIUM CHLORIDE Y-90 [Suspect]
     Active Substance: YTTRIUM CHLORIDE Y-90
     Indication: Hepatoblastoma
  34. YTTRIUM CHLORIDE Y-90 [Suspect]
     Active Substance: YTTRIUM CHLORIDE Y-90
     Indication: Hepatocellular carcinoma
  35. YTTRIUM CHLORIDE Y-90 [Suspect]
     Active Substance: YTTRIUM CHLORIDE Y-90
     Indication: Radioembolisation

REACTIONS (1)
  - Radiation hepatitis [Recovered/Resolved]

NARRATIVE: CASE EVENT DATE: 20240101
